FAERS Safety Report 9781373 (Version 1)
Quarter: 2013Q4

REPORT INFORMATION
  Report Type: Spontaneous
  Country: US (occurrence: None)
  Receive Date: 20131223
  Receipt Date: 20131223
  Transmission Date: 20140711
  Serious: Yes (Hospitalization)
  Sender: FDA-Public Use
  Company Number: None

PATIENT
  Age: 68 Year
  Sex: Male
  Weight: 92.5 kg

DRUGS (29)
  1. GLYCERIN MINERAL OIL [Concomitant]
  2. HALOPERIDOL [Concomitant]
  3. HEPARIN [Concomitant]
  4. HYDROMORPHONE [Concomitant]
  5. LOPERAMIDE [Concomitant]
  6. LORAZEPAM [Concomitant]
  7. MAGNESIUM HYDROXIDE [Concomitant]
  8. MAGNESIUM SULFATE MORPHINE [Concomitant]
  9. MORPHINE ER [Concomitant]
  10. MULTIVITAMIN [Concomitant]
  11. OMEPRAZOLE [Concomitant]
  12. POLYETHYLENE GLYCOL [Concomitant]
  13. POTASSIUM PHOSPHATE [Concomitant]
  14. PREGABALIN [Concomitant]
  15. DOCUSATE SODIUM\SENNOSIDES [Concomitant]
  16. VANCOMYCIN [Concomitant]
  17. ZOLPIDEM [Concomitant]
  18. SIROLIMUS [Suspect]
     Indication: PLASMA CELL MYELOMA
     Dosage: 12 MG DAY -2, 4 MG DAY -1 TO 4
     Dates: start: 20131106, end: 20131111
  19. HYDROXYCHLOROQUINE [Suspect]
     Indication: PLASMA CELL MYELOMA
     Route: 048
     Dates: start: 20131112, end: 20131212
  20. ACETAMINOPHEN [Concomitant]
  21. ACYCLOVIR [Concomitant]
  22. ALUMINUM-MAGNESIUM HYDROXIDE-SIMETHICONE [Concomitant]
  23. DAPTOMYCIN [Concomitant]
  24. DIPHENHYDRAMINE [Concomitant]
  25. DOCUSATE SODIUM [Concomitant]
  26. FEXOFENADINE [Concomitant]
  27. FILGRASTIM [Concomitant]
  28. FLUCONAZOLE [Concomitant]
  29. GLUCOSAMIN HCL [Concomitant]

REACTIONS (3)
  - Intervertebral discitis [None]
  - Osteomyelitis [None]
  - Cellulitis [None]
